FAERS Safety Report 26191124 (Version 1)
Quarter: 2025Q4

REPORT INFORMATION
  Report Type: Report from Study
  Country: US (occurrence: US)
  Receive Date: 20251223
  Receipt Date: 20251223
  Transmission Date: 20260118
  Serious: Yes (Hospitalization)
  Sender: BAYER HEALTHCARE LLC
  Company Number: US-BAYER-2025A165868

PATIENT
  Sex: Female
  Weight: 93.424 kg

DRUGS (12)
  1. ADEMPAS [Suspect]
     Active Substance: RIOCIGUAT
     Indication: Pulmonary arterial hypertension
     Dosage: 0.5 MG, TID
     Route: 048
     Dates: start: 20230808
  2. ASPIRIN [Suspect]
     Active Substance: ASPIRIN
  3. GLIPIZIDE [Concomitant]
     Active Substance: GLIPIZIDE
  4. ROSUVASTATIN CALCIUM [Concomitant]
     Active Substance: ROSUVASTATIN CALCIUM
  5. LETAIRIS [Concomitant]
     Active Substance: AMBRISENTAN
  6. ALBUTEROL SULFATE [Concomitant]
     Active Substance: ALBUTEROL SULFATE
  7. ELIQUIS [Concomitant]
     Active Substance: APIXABAN
  8. ALBUTEROL SULFATE [Concomitant]
     Active Substance: ALBUTEROL SULFATE
  9. METFORMIN HYDROCHLORIDE [Concomitant]
     Active Substance: METFORMIN HYDROCHLORIDE
  10. OXYGEN [Concomitant]
     Active Substance: OXYGEN
  11. FUROSEMIDE [Concomitant]
     Active Substance: FUROSEMIDE
  12. FERROUS SULFATE [Concomitant]
     Active Substance: FERROUS SULFATE

REACTIONS (1)
  - Internal haemorrhage [None]
